FAERS Safety Report 25002475 (Version 1)
Quarter: 2025Q1

REPORT INFORMATION
  Report Type: Spontaneous
  Country: US (occurrence: US)
  Receive Date: 20250224
  Receipt Date: 20250224
  Transmission Date: 20250408
  Serious: No
  Sender: Kenvue
  Company Number: US-KENVUE-20250108460

PATIENT
  Age: 71 Year
  Sex: Female

DRUGS (2)
  1. PEPCID AC [Suspect]
     Active Substance: FAMOTIDINE
     Indication: Gastrooesophageal reflux disease
     Dosage: 1 DOSAGE FORM, TWICE A DAY, USED THIS STRAIGHT FOR 2 MONTHS
     Route: 065
     Dates: start: 20241105
  2. PEPCID AC [Suspect]
     Active Substance: FAMOTIDINE
     Indication: Gastritis

REACTIONS (2)
  - Palpitations [Recovering/Resolving]
  - Incorrect product administration duration [Unknown]

NARRATIVE: CASE EVENT DATE: 20241105
